FAERS Safety Report 12119180 (Version 1)
Quarter: 2016Q1

REPORT INFORMATION
  Report Type: Spontaneous
  Country: US (occurrence: None)
  Receive Date: 20160225
  Receipt Date: 20160225
  Transmission Date: 20160526
  Serious: Yes (Disabling)
  Sender: FDA-Public Use
  Company Number: None

PATIENT
  Age: 36 Year
  Sex: Female
  Weight: 71.67 kg

DRUGS (9)
  1. TOPAMAX [Suspect]
     Active Substance: TOPIRAMATE
     Indication: MIGRAINE PROPHYLAXIS
     Dosage: 1 PILL TWICE DAILY TAKEN BY MOUTH
     Route: 048
     Dates: start: 20150615, end: 20160223
  2. ZINC [Concomitant]
     Active Substance: ZINC\ZINC CHLORIDE
  3. EVENING PRIMROSE OIL [Concomitant]
     Active Substance: EVENING PRIMROSE OIL
  4. MULTIVITAMIN [Concomitant]
     Active Substance: VITAMINS
  5. MAXALT [Concomitant]
     Active Substance: RIZATRIPTAN BENZOATE
  6. LEVOTHYROXINE. [Concomitant]
     Active Substance: LEVOTHYROXINE
  7. MIRENA [Concomitant]
     Active Substance: LEVONORGESTREL
  8. BIOTIN [Concomitant]
     Active Substance: BIOTIN
  9. FLAXSEED [Concomitant]
     Active Substance: FLAX SEED

REACTIONS (4)
  - Depression [None]
  - Alopecia [None]
  - Dysgeusia [None]
  - Paraesthesia [None]

NARRATIVE: CASE EVENT DATE: 20150715
